FAERS Safety Report 15545634 (Version 1)
Quarter: 2018Q4

REPORT INFORMATION
  Report Type: Report from Study
  Country: None (occurrence: CA)
  Receive Date: 20181024
  Receipt Date: 20181024
  Transmission Date: 20190205
  Serious: Yes (Other)
  Sender: FDA-Public Use
  Company Number: CA-ABBVIE-18K-028-2526851-00

PATIENT
  Sex: Female

DRUGS (1)
  1. HUMIRA [Suspect]
     Active Substance: ADALIMUMAB
     Indication: CROHN^S DISEASE
     Route: 058
     Dates: start: 20160630, end: 201704

REACTIONS (9)
  - Gastrointestinal stenosis [Unknown]
  - Intestinal fibrosis [Unknown]
  - Fatigue [Unknown]
  - Crohn^s disease [Unknown]
  - Anastomotic complication [Unknown]
  - Drug level changed [Unknown]
  - Food intolerance [Unknown]
  - Defaecation urgency [Unknown]
  - Drug ineffective [Unknown]
